FAERS Safety Report 9367293 (Version 2)
Quarter: 2013Q3

REPORT INFORMATION
  Report Type: Spontaneous
  Country: FR (occurrence: FR)
  Receive Date: 20130625
  Receipt Date: 20130925
  Transmission Date: 20140515
  Serious: Yes (Death)
  Sender: FDA-Public Use
  Company Number: FR-TEVA-413875ISR

PATIENT
  Age: 83 Year
  Sex: Male

DRUGS (7)
  1. FUROSEMIDE TEVA 40 MG [Suspect]
     Dosage: 120 MILLIGRAM DAILY;
     Route: 048
  2. IRBESARTAN [Concomitant]
     Indication: HYPERTENSION
     Dosage: 150 MILLIGRAM DAILY;
     Route: 048
     Dates: end: 20130530
  3. CLOPIDOGREL [Concomitant]
     Dosage: 75 MILLIGRAM DAILY;
     Route: 048
     Dates: end: 20130530
  4. GABAPENTIN [Concomitant]
     Indication: EPILEPSY
     Dosage: 1200 MILLIGRAM DAILY;
     Route: 048
     Dates: end: 20130530
  5. GABAPENTIN [Concomitant]
     Dosage: 300 MILLIGRAM DAILY;
     Route: 048
     Dates: end: 20130530
  6. CADUET 5MG/10MG [Concomitant]
     Indication: HYPERTENSION
     Dosage: 1 DOSAGE FORMS DAILY; DOSAGE FORM = AMLODIPINE 5 MG + ATORVASTATIN CALCIUM 10 MG
     Route: 048
     Dates: end: 20130530
  7. CADUET 5MG/10MG [Concomitant]
     Indication: HYPERCHOLESTEROLAEMIA

REACTIONS (4)
  - Cardiopulmonary failure [Fatal]
  - Acute pulmonary oedema [Fatal]
  - Pneumonia [Fatal]
  - Somnolence [Fatal]
